FAERS Safety Report 4903967-8 (Version None)
Quarter: 2006Q1

REPORT INFORMATION
  Report Type: 
  Country: None (occurrence: None)
  Receive Date: 20060208
  Receipt Date: 20010803
  Transmission Date: 20060701
  Serious: No
  Sender: FDA-Public Use
  Company Number: US-GLAXOSMITHKLINE-A0350842A

PATIENT
  Age: 46 Year
  Sex: Male
  Weight: 68.03 kg

DRUGS (3)
  1. PAXIL [Suspect]
     Dosage: 20MG PER DAY
     Route: 048
  2. LOTREL [Concomitant]
  3. ZOCOR [Concomitant]

REACTIONS (1)
  - WEIGHT INCREASED [None]
